FAERS Safety Report 7772813-X (Version None)
Quarter: 2011Q3

REPORT INFORMATION
  Report Type: 
  Country: None (occurrence: None)
  Receive Date: 20110922
  Receipt Date: 20110110
  Transmission Date: 20111222
  Serious: Yes (Hospitalization, Other)
  Sender: FDA-Public Use
  Company Number: US-ASTRAZENECA-2007UW07504

PATIENT
  Age: 301 Month
  Sex: Male
  Weight: 78 kg

DRUGS (28)
  1. DEPAKOTE (DIVALPROEX SODIUM)/DEPAKOTE EC [Concomitant]
     Dosage: 250 MG AND 500 MG
     Dates: start: 20040101
  2. RISPERDAL [Concomitant]
     Dosage: 2 MG P.O. Q.A.M. AND 3 MG P.O. Q.H.S
     Route: 048
     Dates: start: 20070906
  3. OXYCONTIN [Concomitant]
     Indication: PAIN
     Dates: start: 20030718
  4. FLAGYL [Concomitant]
     Indication: COLITIS
     Route: 048
     Dates: start: 20070906
  5. CELEXA [Concomitant]
     Dates: start: 20050101
  6. SYNTHROID [Concomitant]
     Route: 048
     Dates: start: 20070906
  7. DEPAKOTE (DIVALPROEX SODIUM)/DEPAKOTE EC [Concomitant]
     Dosage: 250 MG TO 500 MG EVERY NIGHT AT BEDTIME
     Route: 048
     Dates: start: 20030918
  8. DEPAKOTE [Concomitant]
     Dosage: 250 MG TO 500 MG
     Route: 048
     Dates: start: 20030918
  9. LIPITOR [Concomitant]
     Route: 048
     Dates: start: 20070906
  10. LOPID [Concomitant]
     Route: 048
     Dates: start: 20070906
  11. PERIACTIN [Concomitant]
     Dates: start: 20040101
  12. CELEXA [Concomitant]
     Route: 048
     Dates: start: 20070906
  13. COGENTIN (BENZATROPINE) [Concomitant]
     Dates: start: 20040101
  14. LITHOBID (LITHIUM )/LITHIUM ER [Concomitant]
     Route: 048
     Dates: start: 20030801
  15. KLONOPIN [Concomitant]
     Dates: start: 20040101, end: 20060101
  16. COGENTIN (BENZATROPINE) [Concomitant]
     Route: 048
     Dates: start: 20070906
  17. SYNTHROID [Concomitant]
     Dates: start: 20060101
  18. PROTONIX [Concomitant]
     Route: 048
     Dates: start: 20070906
  19. ATIVAN [Concomitant]
     Dosage: 1-2 MG P.O. OR IV OR IM Q.4H. P.R.N
     Dates: start: 20070906
  20. SEROQUEL [Suspect]
     Route: 048
     Dates: start: 20030918, end: 20070101
  21. LITHOBID (LITHIUM )/LITHIUM ER [Concomitant]
     Dates: start: 20040101, end: 20060101
  22. ROXICET [Concomitant]
     Indication: ABDOMINAL DISCOMFORT
     Dosage: 5/375 3 TIMES A DAY, 20 MG QID
     Dates: start: 20030801
  23. PRIMAXIN [Concomitant]
     Indication: PYREXIA
     Dates: start: 20070906
  24. SEROQUEL [Suspect]
     Indication: SCHIZOPHRENIA
     Dosage: 200 MG TO 600 MG EVERY NIGHT AT BEDTIME
     Route: 048
     Dates: start: 20030801
  25. SEROQUEL [Suspect]
     Dosage: 400 MG-800 MG
     Route: 048
     Dates: start: 20030808, end: 20060523
  26. HALDOL [Concomitant]
     Dates: start: 20040101, end: 20050101
  27. RISPERDAL [Concomitant]
     Dates: start: 20040101
  28. XANAX [Concomitant]
     Dates: start: 20050101

REACTIONS (9)
  - OVERDOSE [None]
  - DIABETES MELLITUS INADEQUATE CONTROL [None]
  - DECUBITUS ULCER [None]
  - THERMAL BURN [None]
  - RECTAL HAEMORRHAGE [None]
  - TYPE 2 DIABETES MELLITUS [None]
  - PYREXIA [None]
  - GASTROINTESTINAL HAEMORRHAGE [None]
  - PANCREATITIS ACUTE [None]
